FAERS Safety Report 11169563 (Version 1)
Quarter: 2015Q2

REPORT INFORMATION
  Report Type: Spontaneous
  Country: US (occurrence: US)
  Receive Date: 20150605
  Receipt Date: 20150605
  Transmission Date: 20150821
  Serious: No
  Sender: FDA-Public Use
  Company Number: US-BIOMARINAP-US-2014-103912

PATIENT
  Sex: Female
  Weight: 42 kg

DRUGS (1)
  1. NAGLAZYME [Suspect]
     Active Substance: GALSULFASE
     Indication: MUCOPOLYSACCHARIDOSIS IV
     Dosage: 80 MG, QW
     Route: 042
     Dates: start: 20140320

REACTIONS (1)
  - Infusion site pain [Not Recovered/Not Resolved]
